FAERS Safety Report 9424992 (Version 2)
Quarter: 2013Q3

REPORT INFORMATION
  Report Type: Spontaneous
  Country: US (occurrence: US)
  Receive Date: 20130729
  Receipt Date: 20130730
  Transmission Date: 20140515
  Serious: No
  Sender: FDA-Public Use
  Company Number: US-PFIZER INC-2013218956

PATIENT
  Age: 75 Year
  Sex: Male
  Weight: 90.7 kg

DRUGS (18)
  1. LYRICA [Suspect]
     Indication: SPINAL PAIN
     Dosage: 400 MG, 1X/DAY
     Route: 048
  2. LYRICA [Suspect]
     Indication: NEUROPATHY PERIPHERAL
     Dosage: 300 MG, 1X/DAY
     Route: 048
  3. LYRICA [Suspect]
     Indication: NEURALGIA
  4. LYRICA [Suspect]
     Indication: CONVULSION
  5. AMLODIPINE [Concomitant]
     Dosage: 10 MG, 1X/DAY
     Route: 048
  6. FUROSEMIDE [Concomitant]
     Dosage: 20 MG, 1X/DAY
  7. BUSPIRONE [Concomitant]
     Indication: ANXIETY
     Dosage: 10 MG, 3X/DAY
  8. CYMBALTA [Concomitant]
     Dosage: 60 MG, 1X/DAY
  9. LISINOPRIL [Concomitant]
     Dosage: 40 MG, 2X/DAY
  10. METFORMIN [Concomitant]
     Dosage: 750 MG, 1X/DAY
  11. METOPROLOL [Concomitant]
     Indication: CARDIAC DISORDER
     Dosage: 100 MG, 1X/DAY
  12. TAMSULOSIN [Concomitant]
     Dosage: 410 MG, 1X/DAY
  13. TRAMADOL/ACETAMINOPHEN [Concomitant]
     Indication: PAIN
     Dosage: [TRAMADOL 37.5MG]/ [ACETAMINOPHEN 325MG]
  14. KLOR-CON [Concomitant]
     Indication: CARDIAC DISORDER
     Dosage: UNK, 1X/DAY
  15. LAMOTRIGINE [Concomitant]
     Indication: CONVULSION
     Dosage: 200 MG, 2X/DAY
  16. FINASTERIDE [Concomitant]
     Dosage: 5 MG, 1X/DAY
  17. HYDRALAZINE [Concomitant]
     Dosage: 20 MG, UNK
  18. TRAMADOL [Concomitant]
     Dosage: UNK

REACTIONS (2)
  - Intentional drug misuse [Unknown]
  - Aphonia [Unknown]
